FAERS Safety Report 5664977-9 (Version None)
Quarter: 2008Q1

REPORT INFORMATION
  Report Type: 
  Country: None (occurrence: None)
  Receive Date: 20080314
  Receipt Date: 20080304
  Transmission Date: 20080703
  Serious: Yes (Death, Life-Threatening, Hospitalization, Other)
  Sender: FDA-Public Use
  Company Number: PE-PFIZER INC-2008015219

PATIENT
  Sex: Female

DRUGS (4)
  1. LYRICA [Suspect]
     Indication: BACK PAIN
     Route: 048
     Dates: start: 20071029, end: 20080104
  2. INSULIN [Concomitant]
     Indication: DIABETES MELLITUS
  3. METFORMIN [Concomitant]
     Indication: DIABETES MELLITUS
     Dates: start: 20030101
  4. ALPRAZOLAM [Concomitant]
     Indication: INSOMNIA
     Dates: start: 20030101

REACTIONS (3)
  - DIABETIC COMA [None]
  - PNEUMONIA [None]
  - SEPTIC SHOCK [None]
